FAERS Safety Report 8225004-2 (Version None)
Quarter: 2012Q1

REPORT INFORMATION
  Report Type: 
  Country: None (occurrence: None)
  Receive Date: 20120319
  Receipt Date: 20120308
  Transmission Date: 20120608
  Serious: Yes (Death)
  Sender: FDA-Public Use
  Company Number: DSA_55242_2012

PATIENT
  Sex: Female

DRUGS (2)
  1. WELLBUTRIN XL [Suspect]
     Indication: DEPRESSION
     Dosage: (DF ORAL)
     Route: 048
     Dates: start: 20110101, end: 20110101
  2. NEUROLEPTIC UNKNOWN [Suspect]
     Indication: DEPRESSION
     Dosage: (DF)
     Dates: end: 20110101

REACTIONS (4)
  - MYOCLONUS [None]
  - BLOOD PHOSPHORUS DECREASED [None]
  - RESPIRATORY DISTRESS [None]
  - RESPIRATORY FAILURE [None]
